FAERS Safety Report 4565318-0 (Version None)
Quarter: 2005Q1

REPORT INFORMATION
  Report Type: 
  Country: None (occurrence: None)
  Receive Date: 20050131
  Receipt Date: 20000616
  Transmission Date: 20050727
  Serious: Yes (Life-Threatening, Hospitalization)
  Sender: FDA-Public Use
  Company Number: US-MERCK-00062833

PATIENT
  Age: 59 Year
  Sex: Male
  Weight: 68 kg

DRUGS (6)
  1. VIOXX [Suspect]
     Indication: ROTATOR CUFF SYNDROME
     Route: 048
     Dates: start: 20000510, end: 20000530
  2. LIPITOR [Concomitant]
     Indication: HYPERLIPIDAEMIA
     Route: 048
     Dates: start: 19970101
  3. FLOMAX (NIFLUMIC ACID (BETA)-MORPHOLINOETHYL ESTER) [Concomitant]
     Indication: BENIGN PROSTATIC HYPERPLASIA
     Route: 048
     Dates: start: 19960101
  4. ASPIRIN [Concomitant]
     Route: 048
  5. PRILOSEC [Concomitant]
     Route: 065
  6. VITAMIN E [Concomitant]
     Route: 065

REACTIONS (14)
  - ANGINA UNSTABLE [None]
  - CARDIAC FAILURE CONGESTIVE [None]
  - CHEST WALL PAIN [None]
  - COSTOCHONDRITIS [None]
  - COUGH [None]
  - FATIGUE [None]
  - HYPERTENSION [None]
  - LYMPHADENOPATHY [None]
  - MYOCARDIAL ISCHAEMIA [None]
  - NAIL AVULSION [None]
  - PHARYNGOLARYNGEAL PAIN [None]
  - RENAL FAILURE [None]
  - SEBORRHOEIC KERATOSIS [None]
  - SKIN LACERATION [None]
